FAERS Safety Report 9341864 (Version 1)
Quarter: 2013Q2

REPORT INFORMATION
  Report Type: Spontaneous
  Country: US (occurrence: US)
  Receive Date: 20130611
  Receipt Date: 20130611
  Transmission Date: 20140414
  Serious: Yes (Death)
  Sender: FDA-Public Use
  Company Number: US-PFIZER INC-2013174295

PATIENT
  Age: 79 Year
  Sex: Male
  Weight: 105 kg

DRUGS (1)
  1. SUTENT [Suspect]
     Indication: RENAL CELL CARCINOMA
     Dosage: 50 MG, 2X/DAY
     Dates: start: 20130429

REACTIONS (1)
  - Death [Fatal]
